FAERS Safety Report 6315328-8 (Version None)
Quarter: 2009Q3

REPORT INFORMATION
  Report Type: 
  Country: None (occurrence: None)
  Receive Date: 20090819
  Receipt Date: 20090810
  Transmission Date: 20100115
  Serious: Yes (Hospitalization)
  Sender: FDA-Public Use
  Company Number: US-ELI_LILLY_AND_COMPANY-US200905005099

PATIENT
  Sex: Male

DRUGS (7)
  1. BYETTA [Suspect]
     Dosage: 5 UG, UNKNOWN
     Route: 058
     Dates: end: 20090129
  2. BYETTA [Suspect]
     Dosage: 10 UG, 2/D
     Route: 058
     Dates: start: 20090130, end: 20090401
  3. METFORMIN [Concomitant]
     Dosage: UNK, UNKNOWN
  4. GLIMEPIRIDE [Concomitant]
     Dosage: UNK, UNKNOWN
  5. BENICAR [Concomitant]
     Dosage: UNK, UNKNOWN
  6. PROTONIX [Concomitant]
     Dosage: UNK, UNKNOWN
  7. TRICOR [Concomitant]
     Dosage: UNK, UNKNOWN

REACTIONS (3)
  - COLITIS [None]
  - DEHYDRATION [None]
  - RENAL FAILURE ACUTE [None]
